FAERS Safety Report 10096783 (Version 2)
Quarter: 2014Q2

REPORT INFORMATION
  Report Type: Report from Study
  Country: BR (occurrence: BR)
  Receive Date: 20140422
  Receipt Date: 20140506
  Transmission Date: 20141212
  Serious: Yes (Hospitalization)
  Sender: FDA-Public Use
  Company Number: BR-ELI_LILLY_AND_COMPANY-BR201404003725

PATIENT
  Sex: Male
  Weight: 82 kg

DRUGS (14)
  1. HUMAN INSULIN (RDNA) NPH UNK MANU [Suspect]
     Indication: PRODUCT USED FOR UNKNOWN INDICATION
     Dosage: 24 IU, EACH MORNING
     Route: 058
     Dates: start: 2004
  2. HUMAN INSULIN (RDNA) NPH UNK MANU [Suspect]
     Dosage: 14 IU, QD
     Route: 058
     Dates: start: 2004
  3. HUMAN INSULIN (RDNA) NPH UNK MANU [Suspect]
     Dosage: 18 IU, EACH MORNING
     Route: 058
  4. HUMAN INSULIN (RDNA) NPH UNK MANU [Suspect]
     Dosage: 10 IU, EACH MORNING
     Route: 058
  5. HUMAN INSULIN (RDNA) NPH UNK MANU [Suspect]
     Dosage: UNK UNK, UNKNOWN
     Route: 058
  6. HUMAN INSULIN (RDNA) REGULAR UNK MANU [Suspect]
     Indication: PRODUCT USED FOR UNKNOWN INDICATION
     Dosage: 0.5 ML, OTHER
     Route: 058
  7. HUMAN INSULIN (RDNA) REGULAR UNK MANU [Suspect]
     Dosage: UNK, UNKNOWN
     Route: 058
  8. OMEPRAZOLE [Concomitant]
     Indication: GASTRIC DISORDER
     Dosage: UNK, UNKNOWN
     Route: 065
  9. AMLODIPINE BESYLATE [Concomitant]
     Indication: BLOOD PRESSURE
     Dosage: UNK, UNKNOWN
     Route: 065
  10. FUROSEMIDE [Concomitant]
     Indication: HYPERTENSION
     Dosage: UNK, UNKNOWN
     Route: 065
  11. NEBIVOLOL HYDROCHLORIDE [Concomitant]
     Indication: CARDIAC DISORDER
     Dosage: UNK UNK, UNKNOWN
     Route: 065
  12. NEBIVOLOL HYDROCHLORIDE [Concomitant]
     Indication: CARDIOVASCULAR DISORDER
  13. FOLIC ACID [Concomitant]
     Indication: ANAEMIA
     Dosage: UNK, UNKNOWN
     Route: 065
  14. COMPLEX B                          /00653501/ [Concomitant]
     Indication: ANAEMIA
     Dosage: UNK, UNKNOWN
     Route: 065

REACTIONS (9)
  - Anaemia [Recovered/Resolved]
  - Nervousness [Unknown]
  - Hypovitaminosis [Unknown]
  - Hypophagia [Unknown]
  - Blood glucose increased [Unknown]
  - Drug ineffective [Unknown]
  - Hypoglycaemia [Unknown]
  - Drug effect delayed [None]
  - Product quality issue [None]
